FAERS Safety Report 5748049-0 (Version None)
Quarter: 2008Q2

REPORT INFORMATION
  Report Type: 
  Country: None (occurrence: None)
  Receive Date: 20080523
  Receipt Date: 20080513
  Transmission Date: 20081010
  Serious: Yes (Disabling, Other)
  Sender: FDA-Public Use
  Company Number: US-ELI_LILLY_AND_COMPANY-US200805002857

PATIENT
  Age: 70 Year
  Sex: Female

DRUGS (12)
  1. EVISTA [Suspect]
     Indication: OSTEOPOROSIS
     Dosage: 60 MG, DAILY (1/D)
     Dates: start: 20040101, end: 20080511
  2. VALIUM [Concomitant]
     Indication: NERVOUSNESS
     Dosage: 5 MG, UNK
  3. LIPITOR [Concomitant]
     Indication: BLOOD CHOLESTEROL
     Dosage: UNK, DAILY (1/D)
  4. FUROSEMIDE [Concomitant]
     Indication: FLUID RETENTION
     Dosage: 20 MG, DAILY (1/D)
  5. ALLOPRIN [Concomitant]
     Indication: ARTHRITIS
     Dosage: 300 MG, UNK
  6. NICARDIPINE HYDROCHLORIDE [Concomitant]
     Dosage: 20 MG, 3/D
  7. METOPROLOL TARTRATE [Concomitant]
     Dosage: 50 MG, 2/D
  8. STARLIX [Concomitant]
     Indication: DIABETES MELLITUS
     Dosage: 60 MG, 3/D
  9. FERROUS SULFATE TAB [Concomitant]
     Dosage: 325 MG, 3/D
  10. FAMOTIDINE [Concomitant]
     Indication: GASTROOESOPHAGEAL REFLUX DISEASE
  11. COUMADIN [Concomitant]
     Indication: BLOOD DISORDER
     Dosage: 43 MG, DAILY (1/D)
     Dates: end: 20070101
  12. AVANDIA [Concomitant]

REACTIONS (6)
  - ANAEMIA [None]
  - CONTUSION [None]
  - EPISTAXIS [None]
  - HAEMORRHAGE [None]
  - HYPERSENSITIVITY [None]
  - WEIGHT DECREASED [None]
